FAERS Safety Report 17162620 (Version 1)
Quarter: 2019Q4

REPORT INFORMATION
  Report Type: Spontaneous
  Country: US (occurrence: US)
  Receive Date: 20191217
  Receipt Date: 20191217
  Transmission Date: 20200122
  Serious: Yes (Death, Other)
  Sender: FDA-Public Use
  Company Number: US-GILEAD-2019-0442395

PATIENT
  Age: 69 Year
  Sex: Male

DRUGS (2)
  1. LEDIPASVIR/SOFOSBUVIR [Suspect]
     Active Substance: LEDIPASVIR\SOFOSBUVIR
     Indication: CHRONIC HEPATITIS C
     Route: 065
     Dates: start: 20131107, end: 20131207
  2. RIBAVIRIN. [Suspect]
     Active Substance: RIBAVIRIN
     Indication: CHRONIC HEPATITIS C
     Route: 048
     Dates: start: 20131107, end: 20131207

REACTIONS (55)
  - Retching [Unknown]
  - Gastroenteritis viral [Unknown]
  - Diverticulum [Unknown]
  - Aortic valve calcification [Unknown]
  - Influenza [Unknown]
  - Feeling abnormal [Unknown]
  - Constipation [Unknown]
  - Insomnia [Unknown]
  - Nausea [Unknown]
  - Pulmonary embolism [Fatal]
  - Prostatomegaly [Unknown]
  - Skin hyperpigmentation [Unknown]
  - Oesophageal mucosa erythema [Unknown]
  - Facet joint syndrome [Unknown]
  - Atrial flutter [Unknown]
  - Bradycardia [Unknown]
  - Diarrhoea [Unknown]
  - Pulseless electrical activity [Unknown]
  - White blood cell count increased [Unknown]
  - Dehydration [Unknown]
  - Back injury [Unknown]
  - Dyspnoea [Unknown]
  - Gastrointestinal mucosal disorder [Unknown]
  - Aortic dissection [Unknown]
  - Osteoarthritis [Unknown]
  - Hypophagia [Unknown]
  - Pneumonitis [Unknown]
  - Oral herpes [Unknown]
  - Anxiety [Unknown]
  - Tricuspid valve calcification [Unknown]
  - Acute kidney injury [Unknown]
  - Epididymitis [Unknown]
  - Colitis [Unknown]
  - Atrial tachycardia [Unknown]
  - Back pain [Unknown]
  - Splenomegaly [Unknown]
  - Cardiac arrest [Unknown]
  - Haemothorax [Unknown]
  - Mitral valve calcification [Unknown]
  - Haemoglobin decreased [Unknown]
  - Oedema peripheral [Unknown]
  - Faecaloma [Unknown]
  - Arteriosclerosis [Unknown]
  - Atrial fibrillation [Unknown]
  - Abdominal distension [Unknown]
  - Vascular calcification [Unknown]
  - Thrombocytopenia [Unknown]
  - Feeling of body temperature change [Unknown]
  - Transaminases increased [Unknown]
  - Flatulence [Unknown]
  - Unresponsive to stimuli [Unknown]
  - Leukocytosis [Unknown]
  - Abdominal pain [Unknown]
  - Dyspepsia [Unknown]
  - Headache [Unknown]
